FAERS Safety Report 23210982 (Version 1)
Quarter: 2023Q4

REPORT INFORMATION
  Report Type: Spontaneous
  Country: US (occurrence: US)
  Receive Date: 20231121
  Receipt Date: 20231121
  Transmission Date: 20240110
  Serious: No
  Sender: FDA-Public Use
  Company Number: US-JNJFOC-20231068351

PATIENT
  Age: 14 Year
  Sex: Female

DRUGS (2)
  1. IMODIUM A-D [Suspect]
     Active Substance: LOPERAMIDE HYDROCHLORIDE
     Indication: Diarrhoea
     Dosage: 7.5 ML THEN 15ML
     Route: 048
     Dates: start: 20230913
  2. TROFINETIDE [Concomitant]
     Active Substance: TROFINETIDE
     Indication: Rett syndrome
     Route: 048
     Dates: end: 20230913

REACTIONS (2)
  - Constipation [Unknown]
  - Incorrect dose administered [Unknown]
